FAERS Safety Report 7435492-7 (Version None)
Quarter: 2011Q2

REPORT INFORMATION
  Report Type: 
  Country: None (occurrence: None)
  Receive Date: 20110425
  Receipt Date: 20110415
  Transmission Date: 20111010
  Serious: Yes (Hospitalization, Other)
  Sender: FDA-Public Use
  Company Number: US-ASTRAZENECA-2011SE07340

PATIENT
  Age: 56 Year
  Sex: Female

DRUGS (15)
  1. SEROQUEL [Suspect]
     Indication: ANXIETY
     Route: 048
     Dates: start: 20060101
  2. SEROQUEL [Suspect]
     Indication: PANIC ATTACK
     Route: 048
     Dates: start: 20060101
  3. PHENERGAN HCL [Concomitant]
     Indication: NAUSEA
     Dosage: AS NEEDED
  4. CELEXA [Concomitant]
  5. SYNTHROID [Concomitant]
  6. AMBIEN CR [Concomitant]
  7. AMBIEN [Concomitant]
     Indication: SLEEP DISORDER
  8. BUPROPION [Concomitant]
  9. SEROQUEL [Suspect]
     Indication: BIPOLAR DISORDER
     Route: 048
     Dates: start: 20060101
  10. WELLBUTRIN [Concomitant]
  11. XANAX [Concomitant]
  12. SEROQUEL [Suspect]
     Indication: MIGRAINE
     Route: 048
     Dates: start: 20060101
  13. CELEXA [Concomitant]
  14. ALLEVE [Concomitant]
     Dosage: AS NEEDED
  15. RESTORIL [Concomitant]

REACTIONS (7)
  - INTESTINAL RESECTION [None]
  - SMALL INTESTINAL OBSTRUCTION [None]
  - OSTEOPOROSIS [None]
  - GALLBLADDER OPERATION [None]
  - CHRONIC LYMPHOCYTIC LEUKAEMIA [None]
  - COLITIS ULCERATIVE [None]
  - MIGRAINE [None]
